FAERS Safety Report 13680164 (Version 2)
Quarter: 2017Q3

REPORT INFORMATION
  Report Type: Report from Study
  Country: US (occurrence: US)
  Receive Date: 20170622
  Receipt Date: 20170719
  Transmission Date: 20171127
  Serious: Yes (Death, Hospitalization)
  Sender: FDA-Public Use
  Company Number: US-ACTELION-A-US2016-147774

PATIENT
  Age: 76 Year
  Sex: Male

DRUGS (12)
  1. UPTRAVI [Suspect]
     Active Substance: SELEXIPAG
     Indication: PULMONARY ARTERIAL HYPERTENSION
     Dosage: 600 MCG, BID
     Route: 048
     Dates: start: 20161121, end: 20161205
  2. UPTRAVI [Suspect]
     Active Substance: SELEXIPAG
     Dosage: 400 MCG, BID
     Route: 048
     Dates: start: 20161025
  3. LIFITEGRAST [Concomitant]
     Active Substance: LIFITEGRAST
  4. UPTRAVI [Suspect]
     Active Substance: SELEXIPAG
     Dosage: 800 MCG, BID
     Route: 048
     Dates: start: 20161205, end: 20161212
  5. METOLAZONE. [Concomitant]
     Active Substance: METOLAZONE
  6. TORSEMIDE. [Concomitant]
     Active Substance: TORSEMIDE
  7. POTASSIUM CHLORIDE. [Concomitant]
     Active Substance: POTASSIUM CHLORIDE
  8. TRAMADOL. [Concomitant]
     Active Substance: TRAMADOL
  9. LEVOTHYROXINE. [Concomitant]
     Active Substance: LEVOTHYROXINE
  10. ELMIRON [Concomitant]
     Active Substance: PENTOSAN POLYSULFATE SODIUM
  11. ARANESP [Concomitant]
     Active Substance: DARBEPOETIN ALFA
  12. SILDENAFIL. [Concomitant]
     Active Substance: SILDENAFIL

REACTIONS (10)
  - Surgery [Unknown]
  - Sinusitis [Unknown]
  - Nasopharyngitis [Unknown]
  - Syncope [Unknown]
  - Pain [Unknown]
  - Fluid retention [Unknown]
  - Death [Fatal]
  - Headache [Unknown]
  - Pericardial effusion [Unknown]
  - Vomiting [Unknown]

NARRATIVE: CASE EVENT DATE: 201706
